FAERS Safety Report 7382858-X (Version None)
Quarter: 2011Q1

REPORT INFORMATION
  Report Type: 
  Country: None (occurrence: None)
  Receive Date: 20110323
  Receipt Date: 20110323
  Transmission Date: 20110831
  Serious: Yes (Other)
  Sender: FDA-Public Use
  Company Number: None

PATIENT
  Age: 53 Year
  Weight: 79.3795 kg

DRUGS (1)
  1. ULTILET STERILE ALCOHOL SWABS 200 STERILE SWABS BOCA MEDICAL PRODUCTS [Suspect]
     Indication: THERAPEUTIC SKIN CARE TOPICAL
     Dates: start: 20101015, end: 20110228

REACTIONS (4)
  - SWELLING [None]
  - HAEMORRHAGE [None]
  - PAIN [None]
  - ERYTHEMA [None]
